FAERS Safety Report 23821123 (Version 5)
Quarter: 2024Q4

REPORT INFORMATION
  Report Type: Spontaneous
  Country: US (occurrence: US)
  Receive Date: 20240506
  Receipt Date: 20241115
  Transmission Date: 20250114
  Serious: No
  Sender: PFIZER
  Company Number: US-PFIZER INC-202400048350

PATIENT
  Age: 11 Year
  Sex: Female

DRUGS (2)
  1. GENOTROPIN [Suspect]
     Active Substance: SOMATROPIN
     Indication: Short stature homeobox gene mutation
     Dosage: 1.4 MG, ALTERNATE DAY, 7 DAYS A WEEK
  2. GENOTROPIN [Suspect]
     Active Substance: SOMATROPIN
     Dosage: 1.6 MG, ALTERNATE DAY, 7 DAYS A WEEK

REACTIONS (3)
  - Device information output issue [Unknown]
  - Device mechanical issue [Unknown]
  - Off label use [Unknown]
